FAERS Safety Report 10398818 (Version 1)
Quarter: 2014Q3

REPORT INFORMATION
  Report Type: Spontaneous
  Country: US (occurrence: None)
  Receive Date: 20140818
  Receipt Date: 20140818
  Transmission Date: 20150326
  Serious: Yes (Life-Threatening, Disabling)
  Sender: FDA-Public Use
  Company Number: None

PATIENT
  Age: 21 Year
  Sex: Female

DRUGS (1)
  1. LARIAM [Suspect]
     Active Substance: MEFLOQUINE HYDROCHLORIDE
     Indication: MALARIA PROPHYLAXIS
     Dosage: 1 PILL EVERY 7 DAYS  WEEKLY TAKEN BY MOUTH
     Route: 048
     Dates: end: 20000508

REACTIONS (7)
  - Sleep terror [None]
  - Depression [None]
  - Social avoidant behaviour [None]
  - Insomnia [None]
  - Anxiety [None]
  - Post-traumatic stress disorder [None]
  - Panic attack [None]

NARRATIVE: CASE EVENT DATE: 20000103
